FAERS Safety Report 8428728-7 (Version None)
Quarter: 2012Q2

REPORT INFORMATION
  Report Type: 
  Country: None (occurrence: None)
  Receive Date: 20120612
  Receipt Date: 20120604
  Transmission Date: 20120825
  Serious: Yes (Hospitalization)
  Sender: FDA-Public Use
  Company Number: US-BAYER-201020843NA

PATIENT
  Age: 20 Year
  Sex: Female
  Weight: 62 kg

DRUGS (4)
  1. IBUPROFEN [Concomitant]
     Route: 048
     Dates: start: 20041025
  2. YAZ [Suspect]
     Indication: CONTRACEPTION
  3. YASMIN [Suspect]
     Indication: CONTRACEPTION
     Route: 048
     Dates: start: 20041001, end: 20060119
  4. KEFLEX [Concomitant]
     Route: 048
     Dates: start: 20060109, end: 20060119

REACTIONS (13)
  - THROMBOPHLEBITIS [None]
  - DISCOMFORT [None]
  - HYPOAESTHESIA [None]
  - DYSPNOEA [None]
  - DEPRESSION [None]
  - PARAESTHESIA [None]
  - ANXIETY [None]
  - PAIN IN EXTREMITY [None]
  - CHEST PAIN [None]
  - FATIGUE [None]
  - CHEST DISCOMFORT [None]
  - DEEP VEIN THROMBOSIS [None]
  - OEDEMA PERIPHERAL [None]
